FAERS Safety Report 24449314 (Version 1)
Quarter: 2024Q4

REPORT INFORMATION
  Report Type: Spontaneous
  Country: FR (occurrence: FR)
  Receive Date: 20241017
  Receipt Date: 20241017
  Transmission Date: 20250115
  Serious: Yes (Life-Threatening, Hospitalization)
  Sender: RANBAXY
  Company Number: FR-AFSSAPS-RN2024000879

PATIENT
  Age: 44 Year
  Sex: Male

DRUGS (2)
  1. BACLOFEN [Suspect]
     Active Substance: BACLOFEN
     Indication: Medication error
     Dosage: UNK
     Route: 029
     Dates: start: 20240325, end: 20240325
  2. BACLOFEN [Concomitant]
     Active Substance: BACLOFEN
     Indication: Product used for unknown indication
     Dosage: UNK
     Route: 065

REACTIONS (4)
  - Accidental overdose [Recovered/Resolved]
  - Medication error [Recovered/Resolved]
  - Encephalopathy [Recovered/Resolved]
  - Coma [Recovered/Resolved]

NARRATIVE: CASE EVENT DATE: 20240320
